FAERS Safety Report 9484511 (Version 1)
Quarter: 2013Q3

REPORT INFORMATION
  Report Type: Spontaneous
  Country: US (occurrence: US)
  Receive Date: 20130828
  Receipt Date: 20130828
  Transmission Date: 20140515
  Serious: No
  Sender: FDA-Public Use
  Company Number: US-ABBOTT-13P-163-1094971-00

PATIENT
  Age: 62 Year
  Sex: Male
  Weight: 118.04 kg

DRUGS (15)
  1. ANDROGEL [Suspect]
     Indication: BLOOD TESTOSTERONE DECREASED
     Dates: start: 201304
  2. GABAPENTIN [Suspect]
     Indication: NEUROPATHY PERIPHERAL
     Dosage: JUST INCREASED FROM 300 TO 800
  3. ATORVASTATIN [Concomitant]
     Indication: BLOOD CHOLESTEROL INCREASED
  4. METFORMIN [Concomitant]
     Indication: DIABETES MELLITUS
  5. LISINOPRIL HCTZ [Concomitant]
     Indication: HYPERTENSION
  6. ISOSORBIDE MONONITRATE [Concomitant]
     Indication: PRODUCT USED FOR UNKNOWN INDICATION
     Dosage: DAILY
  7. AMLODIPINE [Concomitant]
     Indication: HYPERTENSION
  8. RAPAFLO [Concomitant]
     Indication: PROSTATOMEGALY
  9. VIIBRYD [Concomitant]
     Indication: DEPRESSION
  10. FINASTERIDE [Concomitant]
     Indication: PRODUCT USED FOR UNKNOWN INDICATION
  11. ATENOL [Concomitant]
     Indication: HYPERTENSION
  12. TEKTURNA [Concomitant]
     Indication: HYPERTENSION
  13. CLONIDINE [Concomitant]
     Indication: HYPERTENSION
  14. LEVOTHYROXINE [Concomitant]
     Indication: HYPERTHYROIDISM
  15. ASPIRIN [Concomitant]
     Indication: PRODUCT USED FOR UNKNOWN INDICATION

REACTIONS (2)
  - Limb discomfort [Not Recovered/Not Resolved]
  - Local swelling [Not Recovered/Not Resolved]
